FAERS Safety Report 7637694-3 (Version None)
Quarter: 2011Q3

REPORT INFORMATION
  Report Type: 
  Country: None (occurrence: None)
  Receive Date: 20110726
  Receipt Date: 20110714
  Transmission Date: 20111222
  Serious: Yes (Hospitalization, Other)
  Sender: FDA-Public Use
  Company Number: US-AMGEN-USASP2011032421

PATIENT
  Age: 70 Year
  Sex: Female
  Weight: 109 kg

DRUGS (4)
  1. XGEVA [Suspect]
     Indication: BREAST CANCER METASTATIC
     Dosage: 120 MG, QMO
     Route: 058
     Dates: start: 20110221
  2. HYDROCHLOROTHIAZID [Concomitant]
  3. FEMARA [Concomitant]
     Dosage: UNK
     Dates: start: 20110201
  4. QUINAPRIL HCL [Concomitant]

REACTIONS (4)
  - THROMBOCYTOPENIA [None]
  - FATIGUE [None]
  - PLATELET COUNT DECREASED [None]
  - DYSPNOEA [None]
